FAERS Safety Report 17720266 (Version 2)
Quarter: 2020Q4

REPORT INFORMATION
  Report Type: Spontaneous
  Country: US (occurrence: US)
  Receive Date: 20200428
  Receipt Date: 20201030
  Transmission Date: 20210113
  Serious: Yes (Death, Other)
  Sender: FDA-Public Use
  Company Number: US-TEVA-2020-US-1226731

PATIENT
  Age: 54 Year
  Sex: Male

DRUGS (3)
  1. VALSARTAN AUROBINDO [Suspect]
     Active Substance: VALSARTAN
     Dosage: DOSAGE: 320 MG
     Route: 065
     Dates: start: 20160124, end: 20170718
  2. VALSARTAN AUROBINDO [Suspect]
     Active Substance: VALSARTAN
     Indication: HYPERTENSION
     Dosage: DOSAGE: 320 MG
     Route: 065
     Dates: start: 20140828, end: 20141028
  3. VALSARTAN SOLCO [Suspect]
     Active Substance: VALSARTAN
     Indication: HYPERTENSION
     Dosage: DOSAGE 320 MG
     Route: 065
     Dates: start: 20170719, end: 201805

REACTIONS (2)
  - Death [Fatal]
  - Oesophageal carcinoma [Unknown]
